FAERS Safety Report 8965754 (Version 1)
Quarter: 2012Q4

REPORT INFORMATION
  Report Type: Spontaneous
  Country: GB (occurrence: None)
  Receive Date: 20121204
  Receipt Date: 20121204
  Transmission Date: 20130627
  Serious: Yes (Other)
  Sender: FDA-Public Use
  Company Number: 2012-21043

PATIENT
  Age: 60 Year
  Sex: Female
  Weight: 88 kg

DRUGS (9)
  1. METFORMIN HYDROCHLORIDE (UNKNOWN) [Suspect]
  2. BYETTA [Suspect]
     Dosage: Had been on 5 micrograms twice a day in the initial month
     Route: 058
     Dates: end: 20121108
  3. FUROSEMIDE [Concomitant]
  4. INSULIN GLARGINE [Concomitant]
  5. SPIRONOLACTONE [Concomitant]
  6. ASPIRIN (ACETYLSALICYLIC ACID) [Concomitant]
  7. BISOPROLOL [Concomitant]
  8. CANDESARTAN [Concomitant]
  9. OMEPRAZOLE [Concomitant]

REACTIONS (3)
  - Renal failure acute [None]
  - Nausea [None]
  - Therapeutic response unexpected [None]
